FAERS Safety Report 10143787 (Version 4)
Quarter: 2016Q1

REPORT INFORMATION
  Report Type: Spontaneous
  Country: US (occurrence: US)
  Receive Date: 20140430
  Receipt Date: 20160308
  Transmission Date: 20160525
  Serious: Yes (Hospitalization, Other)
  Sender: FDA-Public Use
  Company Number: US-GLAXOSMITHKLINE-A1070623A

PATIENT
  Sex: Female

DRUGS (12)
  1. ATENOLOL. [Concomitant]
     Active Substance: ATENOLOL
  2. ALVESCO [Concomitant]
     Active Substance: CICLESONIDE
  3. ADVAIR HFA [Suspect]
     Active Substance: FLUTICASONE PROPIONATE\SALMETEROL XINAFOATE
     Indication: ASTHMA
     Dosage: 100/50
     Route: 055
     Dates: start: 2002, end: 201312
  4. CALTRATE [Concomitant]
     Active Substance: CALCIUM CARBONATE
  5. SIMVASTATIN. [Concomitant]
     Active Substance: SIMVASTATIN
  6. FLUTICASONE [Concomitant]
     Active Substance: FLUTICASONE\FLUTICASONE PROPIONATE
  7. LORATADINE. [Concomitant]
     Active Substance: LORATADINE
  8. HCTZ [Concomitant]
     Active Substance: HYDROCHLOROTHIAZIDE
  9. NEXIUM [Concomitant]
     Active Substance: ESOMEPRAZOLE MAGNESIUM
  10. SPIRIVA [Concomitant]
     Active Substance: TIOTROPIUM BROMIDE MONOHYDRATE
  11. BABY ASPIRIN [Concomitant]
     Active Substance: ASPIRIN
  12. VICKS VAPOSTEAM [Concomitant]
     Active Substance: CAMPHOR

REACTIONS (13)
  - Malignant melanoma [Unknown]
  - Pollakiuria [Recovered/Resolved]
  - Dyspnoea [Unknown]
  - Intensive care [Unknown]
  - Aspiration [Recovered/Resolved]
  - Fatigue [Recovered/Resolved]
  - Larynx irritation [Unknown]
  - Vocal cord disorder [Unknown]
  - Myocardial infarction [Recovered/Resolved]
  - Throat tightness [Recovered/Resolved]
  - Cough [Recovered/Resolved]
  - Laryngeal operation [Unknown]
  - Choking [Recovered/Resolved]

NARRATIVE: CASE EVENT DATE: 2003
